FAERS Safety Report 7268433-6 (Version None)
Quarter: 2011Q1

REPORT INFORMATION
  Report Type: 
  Country: None (occurrence: None)
  Receive Date: 20110201
  Receipt Date: 20110126
  Transmission Date: 20110831
  Serious: Yes (Hospitalization, Other)
  Sender: FDA-Public Use
  Company Number: JP-PFIZER INC-JP-WYE-G06422210

PATIENT
  Age: 56 Year
  Sex: Female
  Weight: 70.998 kg

DRUGS (10)
  1. TAKEPRON [Suspect]
     Dosage: 15.0 MG, 1X/DAY
     Route: 048
     Dates: start: 20100513, end: 20100709
  2. NU LOTAN [Concomitant]
     Indication: HYPERTENSION
     Dosage: 25 MG, 1X/DAY
     Route: 048
     Dates: start: 20100201
  3. CELECOXIB [Suspect]
     Indication: ARTHRALGIA
     Dosage: 200 MG, 2X/DAY
     Route: 048
     Dates: start: 20100501, end: 20100709
  4. LIPITOR [Concomitant]
     Dosage: 5 MG, 1X/DAY
     Route: 048
     Dates: start: 19900101
  5. URSO 250 [Concomitant]
     Dosage: 200 MG,
     Route: 048
     Dates: start: 19900101, end: 20100714
  6. LIPLE [Suspect]
     Indication: ARTHRALGIA
     Dosage: 1.0 DF, WEEKLY
     Route: 041
     Dates: start: 20100501, end: 20100713
  7. DIAZEPAM [Concomitant]
     Dosage: UNK
  8. DIAZEPAM [Concomitant]
     Indication: NEUROSIS
     Dosage: 5 MG, AS NEEDED
     Route: 048
  9. LOSARTAN POTASSIUM [Concomitant]
     Dosage: UNK
     Dates: start: 20100201
  10. GABAPENTIN [Suspect]
     Dosage: 200.0 MG, 3X/DAY
     Route: 048
     Dates: start: 20100513, end: 20100709

REACTIONS (3)
  - PLATELET COUNT DECREASED [None]
  - SYSTEMIC LUPUS ERYTHEMATOSUS [None]
  - HAEMORRHAGE SUBCUTANEOUS [None]
